FAERS Safety Report 7971377 (Version 3)
Quarter: 2013Q2

REPORT INFORMATION
  Report Type: Spontaneous
  Country: US (occurrence: US)
  Receive Date: 20110602
  Receipt Date: 20130513
  Transmission Date: 20140414
  Serious: Yes (Life-Threatening, Hospitalization, Other)
  Sender: FDA-Public Use
  Company Number: US-ASTRAZENECA-2010SE22874

PATIENT
  Age: 66 Year
  Sex: Female
  Weight: 94.8 kg

DRUGS (3)
  1. SYMBICORT PMDI [Suspect]
     Indication: CHRONIC OBSTRUCTIVE PULMONARY DISEASE
     Dosage: 160/4.5 MCG 2 PUFFS BID
     Route: 055
     Dates: start: 20091102
  2. CHEMOTHERAPY [Suspect]
     Route: 065
     Dates: start: 20130131
  3. MANY CONCOMITANT DRUGS AT LEAST 17 [Concomitant]

REACTIONS (18)
  - Pulmonary thrombosis [Unknown]
  - Lung neoplasm malignant [Unknown]
  - Pulmonary hypertension [Unknown]
  - Breast mass [Unknown]
  - Pulmonary mass [Unknown]
  - Polyp [Unknown]
  - Anal cancer [Unknown]
  - Adverse drug reaction [Unknown]
  - White blood cell count decreased [Unknown]
  - Platelet count decreased [Unknown]
  - Apparent death [Unknown]
  - Chronic obstructive pulmonary disease [Unknown]
  - Barrett^s oesophagus [Unknown]
  - Hiatus hernia [Unknown]
  - Oral mucosal blistering [Unknown]
  - Alopecia [Unknown]
  - Eating disorder [Unknown]
  - Weight decreased [Unknown]
